FAERS Safety Report 10757209 (Version 1)
Quarter: 2015Q1

REPORT INFORMATION
  Report Type: Spontaneous
  Country: IN (occurrence: None)
  Receive Date: 20150130
  Receipt Date: 20150130
  Transmission Date: 20150721
  Serious: Yes (Hospitalization, Other)
  Sender: FDA-Public Use
  Company Number: ADR-2015-00199

PATIENT
  Age: 79 Year
  Sex: Female
  Weight: 55 kg

DRUGS (3)
  1. BACLOFEN (ORAL) [Suspect]
     Active Substance: BACLOFEN
     Indication: MUSCLE SPASMS
  2. GABAPENTIN. [Suspect]
     Active Substance: GABAPENTIN
     Indication: MUSCLE SPASMS
  3. DICLOFENAC [Suspect]
     Active Substance: DICLOFENAC
     Route: 062

REACTIONS (4)
  - Hypophagia [None]
  - Somnolence [None]
  - Myoclonus [None]
  - Muscle spasms [None]

NARRATIVE: CASE EVENT DATE: 20141101
